FAERS Safety Report 6811188-7 (Version None)
Quarter: 2010Q2

REPORT INFORMATION
  Report Type: 
  Country: None (occurrence: None)
  Receive Date: 20100629
  Receipt Date: 20100629
  Transmission Date: 20101027
  Serious: Yes (Other)
  Sender: FDA-Public Use
  Company Number: None

PATIENT
  Sex: Male
  Weight: 150.1406 kg

DRUGS (1)
  1. TAMSULOSIN HCL [Suspect]
     Indication: BENIGN PROSTATIC HYPERPLASIA
     Dosage: TAMSULOSIN HCL ORAL PO
     Route: 048
     Dates: start: 20100528

REACTIONS (3)
  - BENIGN PROSTATIC HYPERPLASIA [None]
  - DYSURIA [None]
  - PRODUCT SUBSTITUTION ISSUE [None]
